FAERS Safety Report 7659289-8 (Version None)
Quarter: 2011Q3

REPORT INFORMATION
  Report Type: 
  Country: None (occurrence: None)
  Receive Date: 20110805
  Receipt Date: 20110725
  Transmission Date: 20111222
  Serious: Yes (Other)
  Sender: FDA-Public Use
  Company Number: US-ROCHE-772985

PATIENT
  Sex: Male
  Weight: 61.2 kg

DRUGS (1)
  1. ACCUTANE [Suspect]
     Indication: ACNE
     Dosage: FORM: PILLS
     Route: 048
     Dates: start: 19971001, end: 20000301

REACTIONS (7)
  - INFLAMMATORY BOWEL DISEASE [None]
  - COLITIS ULCERATIVE [None]
  - DEPRESSED MOOD [None]
  - IRRITABLE BOWEL SYNDROME [None]
  - NEPHROLITHIASIS [None]
  - DRY SKIN [None]
  - SUICIDAL IDEATION [None]
